FAERS Safety Report 13846580 (Version 1)
Quarter: 2017Q3

REPORT INFORMATION
  Report Type: Spontaneous
  Country: FR (occurrence: FR)
  Receive Date: 20170808
  Receipt Date: 20170808
  Transmission Date: 20171127
  Serious: Yes (Other)
  Sender: FDA-Public Use
  Company Number: FR-MYLANLABS-2017M1047414

PATIENT

DRUGS (2)
  1. CLAFORAN [Concomitant]
     Active Substance: CEFOTAXIME SODIUM
     Indication: ENCEPHALITIS
     Dosage: 1250 MG, ONCE
     Route: 042
     Dates: start: 20170514
  2. ACICLOVIR MYLAN [Suspect]
     Active Substance: ACYCLOVIR
     Indication: ENCEPHALITIS
     Dosage: 300 MG, Q8H
     Route: 042
     Dates: start: 20170614

REACTIONS (1)
  - Infusion site extravasation [Recovered/Resolved]

NARRATIVE: CASE EVENT DATE: 20170614
